FAERS Safety Report 24380547 (Version 3)
Quarter: 2025Q3

REPORT INFORMATION
  Report Type: Spontaneous
  Country: US (occurrence: US)
  Receive Date: 20240930
  Receipt Date: 20250820
  Transmission Date: 20251021
  Serious: No
  Sender: SANOFI AVENTIS
  Company Number: US-SA-2024SA277161

PATIENT
  Age: 9 Year
  Sex: Female

DRUGS (2)
  1. DUPIXENT [Suspect]
     Active Substance: DUPILUMAB
     Indication: Dermatitis atopic
     Route: 058
     Dates: start: 202407, end: 202407
  2. DUPIXENT [Suspect]
     Active Substance: DUPILUMAB
     Indication: Eczema
     Dosage: 300 MG, QOW
     Route: 058
     Dates: start: 2024

REACTIONS (8)
  - Self-consciousness [Unknown]
  - Pain in extremity [Unknown]
  - Eczema [Recovered/Resolved]
  - Skin hyperpigmentation [Recovered/Resolved]
  - Skin swelling [Recovered/Resolved]
  - Skin discolouration [Unknown]
  - Therapeutic response shortened [Recovered/Resolved]
  - Lack of injection site rotation [Unknown]

NARRATIVE: CASE EVENT DATE: 20240101
